FAERS Safety Report 7768395-9 (Version None)
Quarter: 2011Q3

REPORT INFORMATION
  Report Type: 
  Country: None (occurrence: None)
  Receive Date: 20110922
  Receipt Date: 20110629
  Transmission Date: 20111222
  Serious: No
  Sender: FDA-Public Use
  Company Number: US-ASTRAZENECA-2011SE39052

PATIENT
  Age: 54 Year
  Sex: Female

DRUGS (4)
  1. LITHIUM CARBONATE [Concomitant]
  2. LORAZEPAM [Concomitant]
  3. SEROQUEL [Suspect]
     Indication: INSOMNIA
     Dosage: 100 TO 200 MG AT NIGHT
     Route: 048
  4. SEROQUEL [Suspect]
     Indication: BIPOLAR DISORDER
     Dosage: 100 TO 200 MG AT NIGHT
     Route: 048

REACTIONS (4)
  - OFF LABEL USE [None]
  - INSOMNIA [None]
  - DRUG DOSE OMISSION [None]
  - THERAPEUTIC RESPONSE UNEXPECTED [None]
